APPROVED DRUG PRODUCT: IBUPROFEN AND PSEUDOEPHEDRINE HYDROCHLORIDE
Active Ingredient: IBUPROFEN; PSEUDOEPHEDRINE HYDROCHLORIDE
Strength: 200MG;30MG
Dosage Form/Route: TABLET;ORAL
Application: A077628 | Product #001
Applicant: STRIDES PHARMA GLOBAL PTE LTD
Approved: Aug 14, 2006 | RLD: No | RS: No | Type: OTC